FAERS Safety Report 9426087 (Version 1)
Quarter: 2013Q3

REPORT INFORMATION
  Report Type: Spontaneous
  Country: US (occurrence: US)
  Receive Date: 20130730
  Receipt Date: 20130730
  Transmission Date: 20140515
  Serious: Yes (Hospitalization)
  Sender: FDA-Public Use
  Company Number: US-BIOGENIDEC-2013BI069915

PATIENT
  Age: 50 Year
  Sex: Male

DRUGS (2)
  1. AVONEX [Suspect]
     Indication: MULTIPLE SCLEROSIS
     Route: 030
     Dates: start: 19960611
  2. COPAXONE [Concomitant]

REACTIONS (6)
  - Myocardial infarction [Recovered/Resolved]
  - Angina pectoris [Recovered/Resolved]
  - Neuralgia [Recovered/Resolved]
  - Spinal compression fracture [Recovered/Resolved]
  - Osteoporosis [Not Recovered/Not Resolved]
  - Procedural complication [Recovered/Resolved]
